FAERS Safety Report 17704472 (Version 4)
Quarter: 2020Q2

REPORT INFORMATION
  Report Type: Spontaneous
  Country: US (occurrence: US)
  Receive Date: 20200424
  Receipt Date: 20200527
  Transmission Date: 20200714
  Serious: Yes (Hospitalization)
  Sender: FDA-Public Use
  Company Number: US-VERTEX PHARMACEUTICALS-2020-009261

PATIENT
  Age: 3 Year
  Sex: Male

DRUGS (11)
  1. ZYRTEC [Concomitant]
     Active Substance: CETIRIZINE HYDROCHLORIDE
  2. POLYETHYLENE GLYCOL [MACROGOL] [Concomitant]
     Dosage: EVERY OTHER DAY AS NEEDED
     Route: 048
  3. ORKAMBI [Suspect]
     Active Substance: IVACAFTOR\LUMACAFTOR
     Indication: CYSTIC FIBROSIS
     Dosage: 150MG LUMACAFTOR/188MG IVACAFTOR, BID
     Route: 048
     Dates: start: 20191125
  4. CREON [Concomitant]
     Active Substance: PANCRELIPASE AMYLASE\PANCRELIPASE LIPASE\PANCRELIPASE PROTEASE
  5. ACETAMINOPHEN. [Concomitant]
     Active Substance: ACETAMINOPHEN
     Dosage: 160 MG BY MOUTH EVERY 8 HOURS IF NEEDED
     Route: 048
  6. PANCRELIPASE. [Concomitant]
     Active Substance: PANCRELIPASE
     Dosage: TAKE 3 CAPSULES WITH MEALS AND 2 CAPSULES WITH SNACK FOR A MAX OF 17 DAYS
     Route: 048
  7. ALBUTEROL [SALBUTAMOL] [Concomitant]
     Active Substance: ALBUTEROL
     Indication: DYSPNOEA
  8. MIRALAX [Concomitant]
     Active Substance: POLYETHYLENE GLYCOL 3350
  9. IBUPROFEN. [Concomitant]
     Active Substance: IBUPROFEN
     Indication: PYREXIA
     Dosage: TAKE 100 MG BY MOUTH EVERY 8 HOURS IF NEEDED
     Route: 048
  10. ALBUTEROL [SALBUTAMOL] [Concomitant]
     Active Substance: ALBUTEROL
     Indication: WHEEZING
     Dosage: TAKE3L (1.25 MG TOTAL) BY NEBULIZTION EVERY 4 HOURS
  11. CETIRIZINE HYDROCHLORIDE. [Concomitant]
     Active Substance: CETIRIZINE HYDROCHLORIDE
     Dosage: TAKE 2.5 MG BY MOUTH ONE TIME EACH DAY IF NEEDED
     Route: 048

REACTIONS (3)
  - Influenza [Recovered/Resolved]
  - Post-tussive vomiting [Unknown]
  - Cough [Unknown]

NARRATIVE: CASE EVENT DATE: 20200212
